FAERS Safety Report 21357009 (Version 2)
Quarter: 2022Q4

REPORT INFORMATION
  Report Type: Spontaneous
  Country: US (occurrence: None)
  Receive Date: 20220921
  Receipt Date: 20221017
  Transmission Date: 20230112
  Serious: No
  Sender: FDA-Public Use
  Company Number: 2022A323616

PATIENT

DRUGS (1)
  1. PRILOSEC [Suspect]
     Active Substance: OMEPRAZOLE MAGNESIUM
     Dosage: UNK
     Route: 048

REACTIONS (7)
  - Injury [Unknown]
  - Gastric disorder [Unknown]
  - Diarrhoea [Unknown]
  - Constipation [Unknown]
  - Renal disorder [Unknown]
  - Illness [Unknown]
  - Arthropathy [Unknown]
